FAERS Safety Report 19596523 (Version 1)
Quarter: 2021Q3

REPORT INFORMATION
  Report Type: Spontaneous
  Country: EG (occurrence: EG)
  Receive Date: 20210722
  Receipt Date: 20210722
  Transmission Date: 20211014
  Serious: Yes (Hospitalization, Other)
  Sender: FDA-Public Use
  Company Number: EG-SA-2021SA235729

PATIENT
  Age: 67 Year
  Sex: Male

DRUGS (7)
  1. REMDESIVIR. [Concomitant]
     Active Substance: REMDESIVIR
     Dosage: 200 MG, QD
     Dates: start: 20210411
  2. REMDESIVIR. [Concomitant]
     Active Substance: REMDESIVIR
     Dosage: 100 MG, QD
  3. LYO DROL [Concomitant]
     Indication: DYSPNOEA
     Dosage: 1 G
     Route: 042
  4. CLEXANE [Suspect]
     Active Substance: ENOXAPARIN SODIUM
     Indication: EMBOLISM VENOUS
     Dosage: 80 MG, BID
     Route: 058
     Dates: start: 20210411
  5. ACTRAPID [Concomitant]
     Active Substance: INSULIN HUMAN
     Indication: DIABETES MELLITUS
     Dosage: 100 IU
  6. MEROPENEM. [Concomitant]
     Active Substance: MEROPENEM
     Indication: PNEUMONIA
     Dosage: VIAL
     Dates: start: 20210411
  7. XEREXOMAIR [Concomitant]
     Indication: PNEUMONIA
     Dosage: 500 MG, QD
     Route: 048
     Dates: start: 20210410

REACTIONS (7)
  - Haematemesis [Recovered/Resolved]
  - Thrombocytopenia [Unknown]
  - Oral fungal infection [Recovered/Resolved]
  - Melaena [Recovered/Resolved]
  - Oral candidiasis [Unknown]
  - Haemorrhage [Unknown]
  - COVID-19 [Unknown]

NARRATIVE: CASE EVENT DATE: 20210415
